FAERS Safety Report 8334467-3 (Version None)
Quarter: 2012Q2

REPORT INFORMATION
  Report Type: 
  Country: None (occurrence: None)
  Receive Date: 20120503
  Receipt Date: 20120426
  Transmission Date: 20120825
  Serious: Yes (Other)
  Sender: FDA-Public Use
  Company Number: PHHY2012FR037050

PATIENT
  Age: 52 Year
  Sex: Female

DRUGS (2)
  1. GILENYA [Suspect]
     Indication: MULTIPLE SCLEROSIS
     Dosage: UNK UKN, UNK
     Route: 048
     Dates: start: 20120101
  2. GILENYA [Suspect]
     Dosage: UNK UKN, UNK
     Route: 048
     Dates: end: 20120401

REACTIONS (4)
  - PRURITUS [None]
  - HEPATITIS C ANTIBODY POSITIVE [None]
  - RASH [None]
  - SKIN PLAQUE [None]
